FAERS Safety Report 25443512 (Version 1)
Quarter: 2025Q2

REPORT INFORMATION
  Report Type: Report from Study
  Country: US (occurrence: US)
  Receive Date: 20250617
  Receipt Date: 20250617
  Transmission Date: 20250716
  Serious: Yes (Other)
  Sender: UCB
  Company Number: US-UCBSA-2025018278

PATIENT
  Age: 61 Year
  Sex: Female

DRUGS (1)
  1. BIMEKIZUMAB [Suspect]
     Active Substance: BIMEKIZUMAB
     Indication: Psoriasis
     Dosage: 320 MILLIGRAM, EV 4 WEEKS
     Route: 058
     Dates: start: 20250306

REACTIONS (8)
  - Kidney infection [Not Recovered/Not Resolved]
  - Headache [Not Recovered/Not Resolved]
  - Illness [Not Recovered/Not Resolved]
  - Erythema [Not Recovered/Not Resolved]
  - Thyroid mass [Not Recovered/Not Resolved]
  - Candida infection [Not Recovered/Not Resolved]
  - Cystitis bacterial [Not Recovered/Not Resolved]
  - Vulvovaginal mycotic infection [Not Recovered/Not Resolved]

NARRATIVE: CASE EVENT DATE: 20250306
